FAERS Safety Report 12603038 (Version 2)
Quarter: 2016Q3

REPORT INFORMATION
  Report Type: Report from Study
  Country: BR (occurrence: BR)
  Receive Date: 20160728
  Receipt Date: 20160829
  Transmission Date: 20161109
  Serious: Yes (Death, Hospitalization, Other)
  Sender: FDA-Public Use
  Company Number: BR-BAYER-2016-141879

PATIENT
  Age: 81 Year
  Sex: Male

DRUGS (4)
  1. INSULIN [Concomitant]
     Active Substance: INSULIN NOS
  2. NEXAVAR [Suspect]
     Active Substance: SORAFENIB
     Indication: HEPATIC CANCER
     Dosage: 4 DF, QD
     Route: 048
  3. NEXAVAR [Suspect]
     Active Substance: SORAFENIB
     Indication: HEPATIC CANCER
     Dosage: 1 DF OM AND 1 DF HS
     Dates: end: 201606
  4. NEXAVAR [Suspect]
     Active Substance: SORAFENIB
     Indication: HEPATIC CANCER
     Dosage: 1 DF OM AND 2 DF HS

REACTIONS (7)
  - Drug ineffective [None]
  - Haemorrhoids [None]
  - Haemorrhage [None]
  - Malaise [None]
  - Unevaluable event [None]
  - Blood glucose decreased [Not Recovered/Not Resolved]
  - Organ failure [Fatal]

NARRATIVE: CASE EVENT DATE: 201606
